FAERS Safety Report 9962205 (Version 4)
Quarter: 2014Q3

REPORT INFORMATION
  Report Type: Spontaneous
  Country: US (occurrence: US)
  Receive Date: 20140305
  Receipt Date: 20140819
  Transmission Date: 20150326
  Serious: Yes (Other)
  Sender: FDA-Public Use
  Company Number: US-BAYER-2014-030702

PATIENT
  Age: 18 Year
  Sex: Female
  Weight: 81.63 kg

DRUGS (1)
  1. MIRENA [Suspect]
     Active Substance: LEVONORGESTREL
     Indication: CONTRACEPTION
     Dosage: 20 MG/24HR, CONT
     Route: 015
     Dates: start: 201010, end: 201107

REACTIONS (8)
  - Pain [None]
  - Emotional distress [None]
  - Depression [None]
  - Off label use [None]
  - Uterine perforation [None]
  - Urinary tract infection [None]
  - Kidney infection [None]
  - Injury [None]

NARRATIVE: CASE EVENT DATE: 201107
